FAERS Safety Report 10332597 (Version 3)
Quarter: 2014Q3

REPORT INFORMATION
  Report Type: Spontaneous
  Country: JP (occurrence: JP)
  Receive Date: 20140722
  Receipt Date: 20140829
  Transmission Date: 20150326
  Serious: Yes (Hospitalization)
  Sender: FDA-Public Use
  Company Number: JP-GLAXOSMITHKLINE-B1006101A

PATIENT
  Sex: Male

DRUGS (1)
  1. ZOVIRAX [Suspect]
     Active Substance: ACYCLOVIR
     Indication: HERPES ZOSTER
     Route: 042

REACTIONS (9)
  - Vulval disorder [Unknown]
  - Hepatic function abnormal [Unknown]
  - Drug eruption [Unknown]
  - Oral mucosa erosion [Unknown]
  - Scab [Unknown]
  - Vulvar erosion [Unknown]
  - Laboratory test abnormal [Unknown]
  - Lip erosion [Unknown]
  - Stevens-Johnson syndrome [Recovered/Resolved]
